FAERS Safety Report 8643061 (Version 2)
Quarter: 2012Q4

REPORT INFORMATION
  Report Type: 
  Country: US (occurrence: US)
  Receive Date: 20120629
  Receipt Date: 20121219
  Transmission Date: 20130627
  Serious: Yes (Other)
  Sender: FDA-Public Use
  Company Number: US-PFIZER INC-2012151217

PATIENT
  Age: 48 Year
  Sex: Female

DRUGS (25)
  1. DETROL LA [Suspect]
     Indication: OVERACTIVE BLADDER
     Dosage: 4 mg, 1x/day (24 hr capsule, Take 1 tablet)
     Route: 048
  2. GLUCOTROL XL [Suspect]
     Dosage: 5 mg, 1x/day (24 hr tablet, Take 1 tablet)
     Route: 048
  3. TOVIAZ [Concomitant]
     Indication: OVERACTIVE BLADDER
     Dosage: 8 mg, 1x/day
     Route: 048
  4. PROVENTIL HFA [Concomitant]
     Indication: WHEEZING
     Dosage: 90 mcg/Actuation inhaler, 4x/day (Inhale 1-2 puffs into the lungs every 4 to 6 hours as needed)
  5. VENTOLIN HFA [Concomitant]
     Indication: WHEEZING
     Dosage: 90 mcg/Actuation inhaler, 4x/day (Inhale 1-2 puffs into the lungs every 4 to 6 hours as needed)
  6. AMOXIL [Concomitant]
     Dosage: 500 mg, 3x/day
     Route: 048
  7. CALCIUM WITH VITAMIN D [Concomitant]
     Dosage: 500 mg, (1,250mg) - 200 unit per tablet, 2x/day (Take 1 tablet by mouth 2 times daily with meals)
     Route: 048
  8. CELEXA [Concomitant]
     Dosage: 20 mg, 1x/day
     Route: 048
  9. NEXIUM [Concomitant]
     Dosage: 40 mg every morning before breakfast
     Route: 048
  10. ALLEGRA [Concomitant]
     Dosage: 180 mg, daily
     Route: 048
  11. DIABETA [Concomitant]
     Dosage: 5 mg, daily with breakfast
     Route: 048
  12. ADVIL [Concomitant]
     Indication: PAIN
     Dosage: 800 mg, 4x/day (every 6 hours as needed)
     Route: 048
  13. MOTRIN [Concomitant]
     Indication: PAIN
     Dosage: 800 mg, 4x/day (every 6 hours as needed)
     Route: 048
  14. JANUMET [Concomitant]
     Dosage: 50-1,000 mg per tablet, 2x/day (2 times daily with meals)
     Route: 048
  15. FORTAMET [Concomitant]
     Dosage: 1000 mg, daily with breakfast
     Route: 048
  16. PRILOSEC [Concomitant]
     Dosage: 20 mg, Daily
     Route: 048
  17. K-DUR [Concomitant]
     Dosage: 10 mEq, 2x/day
     Route: 048
  18. PHENERGAN [Concomitant]
     Dosage: 25 mg, 4x/day (every 6 hours as needed)
     Route: 048
  19. CRESTOR [Concomitant]
     Dosage: 20 mg, take 1 tablet every evening
     Route: 048
  20. JANUVIA [Concomitant]
     Dosage: 100 mg, Daily
     Route: 048
  21. TOPAMAX [Concomitant]
     Dosage: 100 mg, 2x/day
     Route: 048
  22. KLOR-CON [Concomitant]
     Dosage: UNK
     Route: 048
  23. CLARINEX [Concomitant]
     Dosage: 5 mg, 1x/day
     Route: 048
  24. ADVAIR [Concomitant]
     Dosage: UNK, 2x/day (250-50 mcg/dose diskus inhaler, inhale 1 puff into the lungs)
     Route: 048
  25. PHENTERMINE [Concomitant]
     Dosage: 37.5 mg, 1x/day (take 1 capsule by mouth every morning)
     Route: 048

REACTIONS (15)
  - Diabetes mellitus inadequate control [Unknown]
  - Essential hypertension [Unknown]
  - Chronic obstructive pulmonary disease [Unknown]
  - Obesity [Unknown]
  - Depression [Unknown]
  - Tooth abscess [Unknown]
  - Blood cholesterol increased [Unknown]
  - Migraine with aura [Unknown]
  - Vitamin D deficiency [Unknown]
  - Vitamin B12 deficiency [Unknown]
  - Gastrooesophageal reflux disease [Unknown]
  - Tobacco user [Unknown]
  - Muscle spasms [Unknown]
  - Arthralgia [Unknown]
  - Nausea [Unknown]
